FAERS Safety Report 19379248 (Version 3)
Quarter: 2021Q2

REPORT INFORMATION
  Report Type: Spontaneous
  Country: CA (occurrence: CA)
  Receive Date: 20210607
  Receipt Date: 20210617
  Transmission Date: 20210717
  Serious: Yes (Other)
  Sender: FDA-Public Use
  Company Number: CA-JNJFOC-20210602353

PATIENT

DRUGS (1)
  1. ZYRTEC [Suspect]
     Active Substance: CETIRIZINE HYDROCHLORIDE
     Indication: PRODUCT USED FOR UNKNOWN INDICATION
     Dosage: TOOK ZYRTEC FOR 2 YEARS AND SLOWLY STARTED TAKING HALF CAPSULE THEN QUARTER CAPSULE TO CONTROL WHEEZ
     Route: 065

REACTIONS (10)
  - Panic attack [Unknown]
  - Incorrect dose administered [Unknown]
  - Eczema [Recovering/Resolving]
  - Withdrawal syndrome [Unknown]
  - Drug dependence [Unknown]
  - Anxiety [Recovering/Resolving]
  - Feeling abnormal [Unknown]
  - Hyperhidrosis [Not Recovered/Not Resolved]
  - Heart rate abnormal [Unknown]
  - Pruritus [Not Recovered/Not Resolved]
